FAERS Safety Report 18086056 (Version 2)
Quarter: 2020Q3

REPORT INFORMATION
  Report Type: Spontaneous
  Country: ES (occurrence: ES)
  Receive Date: 20200729
  Receipt Date: 20200731
  Transmission Date: 20201103
  Serious: Yes (Death, Life-Threatening, Hospitalization, Other)
  Sender: FDA-Public Use
  Company Number: ES-PFIZER INC-2020283334

PATIENT
  Age: 63 Year
  Sex: Female

DRUGS (10)
  1. TRABECTEDIN [Suspect]
     Active Substance: TRABECTEDIN
     Indication: OVARIAN CANCER
     Dosage: UNK, CYCLIC (SIX CYCLES)
     Dates: start: 201507, end: 201512
  2. GEMCITABINE HYDROCHLORIDE. [Suspect]
     Active Substance: GEMCITABINE HYDROCHLORIDE
     Dosage: 1000 MG/M2, CYCLIC (THREE CYCLES)
     Dates: start: 201406, end: 201409
  3. CAELYX [Suspect]
     Active Substance: DOXORUBICIN HYDROCHLORIDE
     Indication: OVARIAN CANCER
     Dosage: UNK, CYCLIC (SIX CYCLES)
     Dates: start: 201507, end: 201512
  4. OLAPARIB. [Suspect]
     Active Substance: OLAPARIB
     Indication: OVARIAN CANCER
     Dosage: 400 MG, 2X/DAY (12 H (HOURS)^)
  5. CARBOPLATIN. [Suspect]
     Active Substance: CARBOPLATIN
     Dosage: UNK, CYCLIC (AREA UNDER THE CURVE OF 5; THREE CYCLES)
     Dates: start: 201406, end: 201409
  6. PACLITAXEL. [Suspect]
     Active Substance: PACLITAXEL
     Indication: OVARIAN CANCER
     Dosage: 175 MG/M2, CYCLIC (6 CYCLES )
     Dates: start: 201204, end: 201209
  7. CARBOPLATIN. [Suspect]
     Active Substance: CARBOPLATIN
     Dosage: UNK, WEEKLY (AT AREA UNDER THE CURVE OF 2; WEEKLY CARBOPLATIN MONOTHERAPY)
     Dates: start: 201611, end: 201702
  8. CARBOPLATIN. [Suspect]
     Active Substance: CARBOPLATIN
     Indication: OVARIAN CANCER
     Dosage: UNK, CYCLIC  (SIX CYCLES; AREA UNDER THE CURVE OF 5)
     Dates: start: 201204, end: 201209
  9. CARBOPLATIN. [Suspect]
     Active Substance: CARBOPLATIN
     Dosage: UNK, CYCLIC (AREA UNDER THE CURVE OF 5; THREE CYCLES)
  10. GEMCITABINE HYDROCHLORIDE. [Suspect]
     Active Substance: GEMCITABINE HYDROCHLORIDE
     Indication: OVARIAN CANCER RECURRENT
     Dosage: 1000 MG/M2, CYCLIC (THREE CYCLES)

REACTIONS (4)
  - Death [Fatal]
  - Second primary malignancy [Unknown]
  - Gastrointestinal infection [Recovered/Resolved]
  - Acute myeloid leukaemia [Unknown]

NARRATIVE: CASE EVENT DATE: 201904
